FAERS Safety Report 20219043 (Version 5)
Quarter: 2023Q1

REPORT INFORMATION
  Report Type: Spontaneous
  Country: IT (occurrence: IT)
  Receive Date: 20211222
  Receipt Date: 20230317
  Transmission Date: 20230417
  Serious: Yes (Death, Life-Threatening, Hospitalization, Other)
  Sender: FDA-Public Use
  Company Number: IT-NOVARTISPH-NVSC2021IT293322

PATIENT
  Age: 66 Year
  Sex: Male

DRUGS (14)
  1. AZITHROMYCIN DIHYDRATE [Interacting]
     Active Substance: AZITHROMYCIN DIHYDRATE
     Indication: COVID-19
     Dosage: 500 MG, QD
     Route: 065
  2. HYDROXYCHLOROQUINE SULFATE [Interacting]
     Active Substance: HYDROXYCHLOROQUINE SULFATE
     Indication: COVID-19
     Dosage: 400 MG, BID
     Route: 065
  3. HYDROXYCHLOROQUINE SULFATE [Interacting]
     Active Substance: HYDROXYCHLOROQUINE SULFATE
     Dosage: 200 MG, BID TAPERED TO 200 MG/TWICE A DAY FOR THE FOLLOWING 4 DAYS
     Route: 065
  4. ACYCLOVIR [Suspect]
     Active Substance: ACYCLOVIR
     Indication: Herpes simplex
     Dosage: 800 MG, TID (3/DAY) (10MG/KG)
     Route: 065
  5. ACYCLOVIR [Suspect]
     Active Substance: ACYCLOVIR
     Indication: Confusional state
  6. METHYLPREDNISOLONE [Suspect]
     Active Substance: METHYLPREDNISOLONE
     Indication: COVID-19
     Dosage: 80 MG, THEN TAPERED TO 40 MG/DAY FOR 3 DAYS AND 20 MG/DAY FOR 1 DAY
     Route: 065
  7. METHYLPREDNISOLONE [Suspect]
     Active Substance: METHYLPREDNISOLONE
     Dosage: 40 MG, QD
     Route: 065
  8. METHYLPREDNISOLONE [Suspect]
     Active Substance: METHYLPREDNISOLONE
     Dosage: 20 MG, QD
     Route: 065
  9. TOCILIZUMAB [Suspect]
     Active Substance: TOCILIZUMAB
     Indication: Respiratory failure
     Dosage: 162 MG, IN 2 DIFFERENT SITES
     Route: 058
  10. TOCILIZUMAB [Suspect]
     Active Substance: TOCILIZUMAB
     Indication: COVID-19
  11. TOCILIZUMAB [Suspect]
     Active Substance: TOCILIZUMAB
     Indication: Interstitial lung disease
  12. MIDAZOLAM [Suspect]
     Active Substance: MIDAZOLAM
     Indication: Confusional state
     Dosage: UNK
     Route: 065
  13. MIDAZOLAM [Suspect]
     Active Substance: MIDAZOLAM
     Indication: Agitation
  14. MORPHINE SULFATE [Suspect]
     Active Substance: MORPHINE SULFATE
     Indication: Product used for unknown indication
     Dosage: UNK
     Route: 065

REACTIONS (18)
  - Acute kidney injury [Fatal]
  - Metabolic acidosis [Fatal]
  - Acute hepatic failure [Fatal]
  - Stupor [Fatal]
  - Hypotension [Fatal]
  - Septic shock [Fatal]
  - Liver function test [Fatal]
  - Neurological examination abnormal [Fatal]
  - Agitation [Fatal]
  - Confusional state [Fatal]
  - Anisocoria [Fatal]
  - Drug interaction [Fatal]
  - Shock haemorrhagic [Fatal]
  - Product use in unapproved indication [Fatal]
  - Off label use [Fatal]
  - Product use issue [Fatal]
  - Herpes simplex [Fatal]
  - Herpes simplex viraemia [Unknown]
